FAERS Safety Report 7231604-9 (Version None)
Quarter: 2011Q1

REPORT INFORMATION
  Report Type: 
  Country: None (occurrence: None)
  Receive Date: 20110107
  Receipt Date: 20101231
  Transmission Date: 20110831
  Serious: Yes (Death)
  Sender: FDA-Public Use
  Company Number: WAES 1101FRA00001

PATIENT
  Age: 43 Year
  Sex: Male

DRUGS (10)
  1. ASCORBIC ACID [Concomitant]
  2. PYRAZINAMIDE [Concomitant]
  3. LAMIVUDINE [Concomitant]
  4. ETHAMBUTOL HYDROCHLORIDE [Concomitant]
  5. ISONIAZID [Concomitant]
  6. TAB RALTEGRAVIR POTASSIUM [Suspect]
     Indication: HIV INFECTION
     Dosage: 400 MG/BID/PO
     Route: 048
     Dates: start: 20101214, end: 20101224
  7. PYRIDOXINE [Concomitant]
  8. SULFAMETHOXAZOLE AND TRIMETHOPRIM [Concomitant]
  9. TENOFOVIR [Concomitant]
  10. RIFAMPIN [Concomitant]

REACTIONS (1)
  - DEATH [None]
